FAERS Safety Report 20321204 (Version 1)
Quarter: 2022Q1

REPORT INFORMATION
  Report Type: Spontaneous
  Country: HR (occurrence: HR)
  Receive Date: 20220111
  Receipt Date: 20220111
  Transmission Date: 20220423
  Serious: Yes (Other)
  Sender: FDA-Public Use
  Company Number: None

PATIENT
  Age: 65 Year
  Sex: Female
  Weight: 74 kg

DRUGS (2)
  1. PANTOPRAZOLE SODIUM [Suspect]
     Active Substance: PANTOPRAZOLE SODIUM
     Indication: Prophylaxis
     Dosage: UNK (2 X DNEVNO)
     Route: 048
     Dates: start: 20211125, end: 20211222
  2. HYDROXYCARBAMIDUM [Concomitant]
     Indication: Chemotherapy
     Dosage: UNK
     Route: 048

REACTIONS (5)
  - Gastrointestinal pain [Recovered/Resolved]
  - Frequent bowel movements [Recovered/Resolved]
  - Fatigue [Recovered/Resolved]
  - Diarrhoea [Recovered/Resolved]
  - Malaise [Recovered/Resolved]

NARRATIVE: CASE EVENT DATE: 20211210
